FAERS Safety Report 5303505-4 (Version None)
Quarter: 2007Q2

REPORT INFORMATION
  Report Type: 
  Country: None (occurrence: None)
  Receive Date: 20070420
  Receipt Date: 20070413
  Transmission Date: 20071010
  Serious: Yes (Other)
  Sender: FDA-Public Use
  Company Number: BR-PFIZER INC-2007030574

PATIENT
  Age: 32 Year
  Sex: Female

DRUGS (2)
  1. FRAGMIN [Suspect]
     Indication: HYPERCOAGULATION
  2. CLEXANE [Suspect]
     Dosage: TEXT:UNKNOWN

REACTIONS (1)
  - ABORTION [None]
